FAERS Safety Report 24672298 (Version 1)
Quarter: 2024Q4

REPORT INFORMATION
  Report Type: Spontaneous
  Country: US (occurrence: US)
  Receive Date: 20241127
  Receipt Date: 20241127
  Transmission Date: 20250115
  Serious: No
  Sender: SANOFI AVENTIS
  Company Number: US-SA-2024SA346601

PATIENT
  Age: 7 Year
  Sex: Male
  Weight: 24.27 kg

DRUGS (6)
  1. DUPIXENT [Suspect]
     Active Substance: DUPILUMAB
     Indication: Dermatitis atopic
     Dosage: 600 MG, 1X
     Route: 058
     Dates: start: 20241118, end: 20241118
  2. EUCERIN ECZEMA RELIEF [Concomitant]
  3. CEPHALEXIN [Concomitant]
     Active Substance: CEPHALEXIN
  4. EPIPEN [Concomitant]
     Active Substance: EPINEPHRINE
  5. VITAMINS [Concomitant]
     Active Substance: VITAMINS
  6. BENADRYL ALLERGY [Concomitant]
     Active Substance: DIPHENHYDRAMINE HYDROCHLORIDE

REACTIONS (1)
  - Injection site swelling [Recovered/Resolved]

NARRATIVE: CASE EVENT DATE: 20241118
